FAERS Safety Report 8991313 (Version 3)
Quarter: 2013Q1

REPORT INFORMATION
  Report Type: Spontaneous
  Country: TW (occurrence: TW)
  Receive Date: 20121230
  Receipt Date: 20130218
  Transmission Date: 20140127
  Serious: Yes (Death, Hospitalization, Other)
  Sender: FDA-Public Use
  Company Number: TW-AMGEN-TWNSP2012083592

PATIENT
  Age: 53 Year
  Sex: Male

DRUGS (1)
  1. ENBREL [Suspect]
     Indication: RHEUMATOID ARTHRITIS
     Dosage: 1 AMP, 2X/WEEK
     Route: 058
     Dates: start: 20070904

REACTIONS (6)
  - Acute respiratory distress syndrome [Fatal]
  - Respiratory failure [Fatal]
  - Pulseless electrical activity [Unknown]
  - Bradycardia [Unknown]
  - Pneumonia [Fatal]
  - Sepsis [Fatal]
